FAERS Safety Report 24863351 (Version 2)
Quarter: 2025Q1

REPORT INFORMATION
  Report Type: Spontaneous
  Country: US (occurrence: US)
  Receive Date: 20250120
  Receipt Date: 20250202
  Transmission Date: 20250409
  Serious: No
  Sender: SANOFI AVENTIS
  Company Number: US-SA-2025SA013646

PATIENT
  Age: 1 Year
  Sex: Male

DRUGS (1)
  1. DUPIXENT [Suspect]
     Active Substance: DUPILUMAB
     Indication: Eosinophilic oesophagitis
     Dosage: 200 MG, QOW
     Route: 058
     Dates: start: 202410

REACTIONS (5)
  - Gastrooesophageal reflux disease [Unknown]
  - Weight increased [Unknown]
  - Condition aggravated [Unknown]
  - Eczema [Unknown]
  - Eosinophilic oesophagitis [Unknown]

NARRATIVE: CASE EVENT DATE: 20240101
